FAERS Safety Report 18027921 (Version 2)
Quarter: 2020Q3

REPORT INFORMATION
  Report Type: Spontaneous
  Country: JP (occurrence: JP)
  Receive Date: 20200715
  Receipt Date: 20200717
  Transmission Date: 20201103
  Serious: Yes (Death)
  Sender: FDA-Public Use
  Company Number: JP-ASTRAZENECA-2020SE87133

PATIENT
  Age: 98 Year
  Sex: Female

DRUGS (6)
  1. MAGNESIUM OXIDE. [Concomitant]
     Active Substance: MAGNESIUM OXIDE
     Dosage: UNKNOWN DOSE
     Route: 065
  2. LOKELMA [Suspect]
     Active Substance: SODIUM ZIRCONIUM CYCLOSILICATE
     Indication: HYPERKALAEMIA
     Route: 048
     Dates: start: 20200616, end: 20200622
  3. NICARDIPINE HYDROCHLORIDE. [Concomitant]
     Active Substance: NICARDIPINE HYDROCHLORIDE
     Dosage: UNKNOWN DOSE
     Route: 065
  4. IRBESARTAN. [Concomitant]
     Active Substance: IRBESARTAN
     Dosage: UNKNOWN DOSE
     Route: 065
  5. FUROSEMIDE. [Concomitant]
     Active Substance: FUROSEMIDE
     Dosage: UNKNOWN DOSE
     Route: 065
  6. MINERAL PREPARATIONS [Concomitant]
     Dosage: UNKNOWN DOSE
     Route: 065

REACTIONS (2)
  - Marasmus [Fatal]
  - Feeding disorder [Unknown]

NARRATIVE: CASE EVENT DATE: 2020
